FAERS Safety Report 24570589 (Version 1)
Quarter: 2024Q4

REPORT INFORMATION
  Report Type: Spontaneous
  Country: CN (occurrence: CN)
  Receive Date: 20241031
  Receipt Date: 20241031
  Transmission Date: 20250115
  Serious: Yes (Hospitalization)
  Sender: NOVARTIS
  Company Number: CN-002147023-NVSC2024CN210285

PATIENT
  Age: 60 Year
  Sex: Male
  Weight: 60 kg

DRUGS (2)
  1. IMATINIB [Suspect]
     Active Substance: IMATINIB
     Indication: Gastric cancer
     Dosage: 0.4 G, QD
     Route: 048
  2. IMATINIB [Suspect]
     Active Substance: IMATINIB
     Dosage: 0.6 G, QD
     Route: 048
     Dates: start: 20240925, end: 20241025

REACTIONS (4)
  - Oedema peripheral [Recovering/Resolving]
  - Palpitations [Recovered/Resolved]
  - Chest discomfort [Recovered/Resolved]
  - Full blood count decreased [Recovering/Resolving]

NARRATIVE: CASE EVENT DATE: 20240930
